FAERS Safety Report 21156234 (Version 2)
Quarter: 2022Q3

REPORT INFORMATION
  Report Type: Spontaneous
  Country: CA (occurrence: CA)
  Receive Date: 20220801
  Receipt Date: 20220912
  Transmission Date: 20221027
  Serious: Yes (Other)
  Sender: FDA-Public Use
  Company Number: CA-CELLTRION INC.-2021CA012705

PATIENT

DRUGS (7)
  1. INFLECTRA [Suspect]
     Active Substance: INFLIXIMAB-DYYB
     Indication: Visual impairment
     Dosage: 3-5 MG/KG (300MG) AT 0, 2, 6 THEN EVERY 8 WEEKS
     Route: 042
     Dates: start: 20210825, end: 20211020
  2. INFLECTRA [Suspect]
     Active Substance: INFLIXIMAB-DYYB
     Indication: Cystoid macular oedema
     Dosage: 3-5 MG/KG (300MG) AT 0, 2, 6 THEN EVERY 8 WEEKS
     Route: 042
     Dates: start: 20210908
  3. INFLECTRA [Suspect]
     Active Substance: INFLIXIMAB-DYYB
     Dosage: 3-5 MG/KG (300MG) AT 0, 2, 6 THEN EVERY 8 WEEKS
     Route: 042
     Dates: start: 20211020
  4. INFLECTRA [Suspect]
     Active Substance: INFLIXIMAB-DYYB
     Dosage: 3-5 MG/KG (300MG) AT 0, 2, 6 THEN EVERY 8 WEEKS
     Route: 042
     Dates: start: 20211210
  5. INFLECTRA [Suspect]
     Active Substance: INFLIXIMAB-DYYB
     Dosage: 300 MG, EVERY 8 WEEKS
     Route: 042
     Dates: start: 20211210
  6. INFLECTRA [Suspect]
     Active Substance: INFLIXIMAB-DYYB
     Dosage: 300 MG, EVERY 8 WEEKS
     Route: 042
     Dates: start: 20220204
  7. PREDNISONE [Concomitant]
     Active Substance: PREDNISONE
     Dosage: UNK (WEANING OFF HER PREDNISONE)

REACTIONS (14)
  - Surgery [Unknown]
  - Off label use [Unknown]
  - Off label use [Unknown]
  - Intentional product use issue [Unknown]
  - Inappropriate schedule of product administration [Unknown]
  - Drug effective for unapproved indication [Unknown]
  - Weight increased [Unknown]
  - Exposure to SARS-CoV-2 [Unknown]
  - Illness [Unknown]
  - Nasopharyngitis [Unknown]
  - Oropharyngeal pain [Unknown]
  - Cough [Unknown]
  - Nasal congestion [Unknown]
  - Eye pain [Unknown]

NARRATIVE: CASE EVENT DATE: 20211020
